FAERS Safety Report 24731714 (Version 1)
Quarter: 2024Q4

REPORT INFORMATION
  Report Type: Spontaneous
  Country: CN (occurrence: CN)
  Receive Date: 20241213
  Receipt Date: 20241213
  Transmission Date: 20250114
  Serious: Yes (Hospitalization, Other)
  Sender: BAXTER
  Company Number: None

PATIENT
  Age: 2 Year
  Sex: Female
  Weight: 11 kg

DRUGS (7)
  1. CYCLOPHOSPHAMIDE [Suspect]
     Active Substance: CYCLOPHOSPHAMIDE
     Indication: Neoplasm malignant
     Dosage: 0.6 G, ONE TIME IN ONE DAY, DILUTED WITH 250 ML OF GLUCOSE AND SODIUM CHLORIDE (4:1)
     Route: 041
     Dates: start: 20241102, end: 20241103
  2. SODIUM CHLORIDE [Suspect]
     Active Substance: SODIUM CHLORIDE
     Indication: Medication dilution
     Dosage: 250 ML SODIUM CHLORIDE, 250 ML GLUCOSE (1:4), ONE TIME IN ONE DAY, USED TO DILUTE 0.6 G OF CYCLOPHOS
     Route: 041
     Dates: start: 20241102, end: 20241103
  3. SODIUM CHLORIDE [Suspect]
     Active Substance: SODIUM CHLORIDE
     Dosage: (0.9%) 250 ML, ONE TIME IN ONE DAY, USED TO DILUTE 19 MG OF EPIRUBICIN HYDROCHLORIDE
     Route: 041
     Dates: start: 20241102, end: 20241103
  4. SODIUM CHLORIDE [Suspect]
     Active Substance: SODIUM CHLORIDE
     Dosage: (0.9%) 50 ML, ONE TIME IN ONE DAY, USED TO DILUTE 1.5 MG OF VINDESINE SULFATE
     Route: 041
     Dates: start: 20241102, end: 20241102
  5. DEXTROSE [Suspect]
     Active Substance: DEXTROSE MONOHYDRATE
     Indication: Medication dilution
     Dosage: 250 ML GLUCOSE, 250 ML SODIUM CHLORIDE (4:1), ONE TIME IN ONE DAY, USED TO DILUTE 0.6 G OF CYCLOPHOS
     Route: 041
     Dates: start: 20241102, end: 20241103
  6. EPIRUBICIN [Suspect]
     Active Substance: EPIRUBICIN
     Indication: Neoplasm malignant
     Dosage: 19 MG, ONE TIME IN ONE DAY, DILUTED WITH 250 ML OF 0.9% SODIUM CHLORIDE
     Route: 041
     Dates: start: 20241102, end: 20241103
  7. VINDESINE SULFATE [Suspect]
     Active Substance: VINDESINE SULFATE
     Indication: Neoplasm malignant
     Dosage: 1.5 MG, ONE TIME IN ONE DAY, DILUTED WITH 50 ML OF 0.9% SODIUM CHLORIDE
     Route: 041
     Dates: start: 20241102, end: 20241102

REACTIONS (1)
  - Myelosuppression [Recovering/Resolving]

NARRATIVE: CASE EVENT DATE: 20241113
